FAERS Safety Report 9584483 (Version 2)
Quarter: 2013Q4

REPORT INFORMATION
  Report Type: Spontaneous
  Country: US (occurrence: US)
  Receive Date: 20131002
  Receipt Date: 20131002
  Transmission Date: 20140711
  Serious: No
  Sender: FDA-Public Use
  Company Number: US-AMGEN-USASP2013050666

PATIENT
  Age: 47 Year
  Sex: Female
  Weight: 58.96 kg

DRUGS (17)
  1. ENBREL [Suspect]
     Indication: RHEUMATOID ARTHRITIS
     Dosage: 50 MG, QWK
     Route: 058
     Dates: start: 20130618
  2. FOLIC ACID [Concomitant]
     Dosage: UNK
  3. METHOTREXATE [Concomitant]
     Dosage: 2.5 MG, UNK
  4. NORVASC [Concomitant]
     Dosage: 10 MG, UNK
  5. ZOLOFT [Concomitant]
     Dosage: 50 MG, UNK
  6. BABY ASPIRIN [Concomitant]
     Dosage: 81 MG, UNK
  7. VALTREX [Concomitant]
     Dosage: 500 MG, UNK
  8. KEFLEX                             /00145501/ [Concomitant]
     Dosage: 500 MG, UNK
  9. TYLENOL                            /00020001/ [Concomitant]
     Dosage: 650 MG, Q8H
  10. AMOXICILLIN [Concomitant]
     Dosage: 500 MG, UNK
  11. CALCIUM [Concomitant]
     Dosage: 500 UNK, UNK
  12. VITAMIN B12 [Concomitant]
     Dosage: 250 MUG, UNK
  13. MAGNESIUM [Concomitant]
     Dosage: 300 MG, UNK
  14. FISH OIL [Concomitant]
     Dosage: UNK
  15. BIOTIN [Concomitant]
     Dosage: 5000 UNK, UNK
  16. VITAMIN C                          /00008001/ [Concomitant]
     Dosage: 500 MG, UNK
  17. MULTI                              /05812401/ [Concomitant]
     Dosage: UNK

REACTIONS (7)
  - Injection site mass [Unknown]
  - Injection site erythema [Unknown]
  - Injection site swelling [Unknown]
  - Injection site induration [Unknown]
  - Injection site pruritus [Unknown]
  - Injection site discolouration [Unknown]
  - Injection site reaction [Unknown]
